FAERS Safety Report 6806026-2 (Version None)
Quarter: 2010Q2

REPORT INFORMATION
  Report Type: 
  Country: None (occurrence: None)
  Receive Date: 20100629
  Receipt Date: 20071204
  Transmission Date: 20101027
  Serious: No
  Sender: FDA-Public Use
  Company Number: US-PFIZER INC-2007098409

PATIENT
  Sex: Male
  Weight: 90.72 kg

DRUGS (10)
  1. TIKOSYN [Suspect]
     Indication: HEART RATE IRREGULAR
     Route: 048
     Dates: start: 20071105
  2. ACETYLSALICYLIC ACID [Concomitant]
  3. BENICAR [Concomitant]
  4. CENTRUM SILVER [Concomitant]
  5. NASONEX [Concomitant]
  6. SIMVASTATIN [Concomitant]
  7. LASIX [Concomitant]
  8. WARFARIN SODIUM [Concomitant]
  9. GLYCERYL TRINITRATE [Concomitant]
  10. K-DUR [Concomitant]

REACTIONS (4)
  - COUGH [None]
  - HEART RATE INCREASED [None]
  - INTERNATIONAL NORMALISED RATIO ABNORMAL [None]
  - OROPHARYNGEAL PAIN [None]
